FAERS Safety Report 4393505-3 (Version None)
Quarter: 2004Q3

REPORT INFORMATION
  Report Type: 
  Country: None (occurrence: None)
  Receive Date: 20040709
  Receipt Date: 20040628
  Transmission Date: 20050211
  Serious: Yes (Other)
  Sender: FDA-Public Use
  Company Number: US-BRISTOL-MYERS SQUIBB COMPANY-12630273

PATIENT
  Age: 44 Year
  Sex: Male

DRUGS (4)
  1. STAVUDINE [Suspect]
  2. DIDANOSINE [Suspect]
  3. EFAVIRENZ [Suspect]
  4. HYDROXYUREA [Suspect]

REACTIONS (1)
  - MUSCULAR WEAKNESS [None]
